FAERS Safety Report 10971498 (Version 1)
Quarter: 2015Q1

REPORT INFORMATION
  Report Type: Report from Study
  Country: BR (occurrence: BR)
  Receive Date: 20150331
  Receipt Date: 20150331
  Transmission Date: 20150721
  Serious: Yes (Other)
  Sender: FDA-Public Use
  Company Number: BR-GLAXOSMITHKLINE-BR2015GSK038889

PATIENT
  Sex: Female
  Weight: 12 kg

DRUGS (2)
  1. MONTELUKAST SODIUM. [Concomitant]
     Active Substance: MONTELUKAST SODIUM
     Indication: ASTHMA
     Dosage: UNK
     Dates: start: 20150320
  2. FLUTICASONE PROPIONATE. [Suspect]
     Active Substance: FLUTICASONE PROPIONATE
     Indication: ASTHMA
     Dosage: 50 ?G, 2 SQUIRTS IN MORNING AND 2 SQUIRTS AT NIGHT
     Dates: start: 20140320, end: 20150319

REACTIONS (2)
  - Condition aggravated [Unknown]
  - Asthmatic crisis [Not Recovered/Not Resolved]
